FAERS Safety Report 9967460 (Version 1)
Quarter: 2014Q1

REPORT INFORMATION
  Report Type: Report from Study
  Country: US (occurrence: US)
  Receive Date: 20140305
  Receipt Date: 20140305
  Transmission Date: 20141002
  Serious: No
  Sender: FDA-Public Use
  Company Number: US-ABBVIE-13P-163-1138425-00

PATIENT
  Age: 55 Year
  Sex: Female

DRUGS (6)
  1. HUMIRA [Suspect]
     Indication: RHEUMATOID ARTHRITIS
     Dates: start: 201305
  2. METHOTREXATE [Concomitant]
     Indication: RHEUMATOID ARTHRITIS
  3. FOLIC ACID [Concomitant]
     Indication: PRODUCT USED FOR UNKNOWN INDICATION
  4. CARDIZEM [Concomitant]
     Indication: PALPITATIONS
     Dosage: 120MG DAILY
  5. PREDNISONE [Concomitant]
     Indication: RHEUMATOID ARTHRITIS
     Dosage: 5MG DAILY
  6. INHALER [Concomitant]
     Indication: ASTHMA
     Dosage: 2 PUFFS DAILY

REACTIONS (4)
  - Malaise [Recovering/Resolving]
  - Respiratory tract congestion [Recovering/Resolving]
  - Sputum discoloured [Recovering/Resolving]
  - Bronchitis [Recovering/Resolving]
